FAERS Safety Report 13193934 (Version 2)
Quarter: 2017Q1

REPORT INFORMATION
  Report Type: Spontaneous
  Country: US (occurrence: US)
  Receive Date: 20170207
  Receipt Date: 20170214
  Transmission Date: 20170428
  Serious: Yes (Death, Hospitalization)
  Sender: FDA-Public Use
  Company Number: US-UNITED THERAPEUTICS-UNT-2017-001533

PATIENT
  Age: 74 Year
  Sex: Female
  Weight: 62.59 kg

DRUGS (2)
  1. REMODULIN [Suspect]
     Active Substance: TREPROSTINIL
     Dosage: 0.119 ?G/KG, CONTINUING
     Route: 041
     Dates: start: 20131210
  2. REMODULIN [Suspect]
     Active Substance: TREPROSTINIL
     Indication: PULMONARY ARTERIAL HYPERTENSION
     Dosage: 0.119 ?G/KG, CONTINUING
     Route: 041
     Dates: start: 20131127

REACTIONS (3)
  - Encephalopathy [Unknown]
  - Pneumonia [Fatal]
  - Mental status changes [Unknown]

NARRATIVE: CASE EVENT DATE: 20170201
